FAERS Safety Report 11292995 (Version 1)
Quarter: 2015Q3

REPORT INFORMATION
  Report Type: Spontaneous
  Country: US (occurrence: US)
  Receive Date: 20150722
  Receipt Date: 20150722
  Transmission Date: 20151125
  Serious: No
  Sender: FDA-Public Use
  Company Number: US-DSJP-DSU-2015-112379

PATIENT
  Age: 79 Year
  Sex: Female

DRUGS (1)
  1. SAVAYSA [Suspect]
     Active Substance: EDOXABAN TOSYLATE
     Indication: PRODUCT USED FOR UNKNOWN INDICATION
     Dosage: 60 MG, UNK
     Route: 048

REACTIONS (4)
  - Dry mouth [Unknown]
  - Nausea [Unknown]
  - Dyspnoea [Unknown]
  - Abdominal pain [Unknown]
